FAERS Safety Report 7315898-7 (Version None)
Quarter: 2011Q1

REPORT INFORMATION
  Report Type: 
  Country: None (occurrence: None)
  Receive Date: 20110225
  Receipt Date: 20110214
  Transmission Date: 20110831
  Serious: Yes (Hospitalization, Other)
  Sender: FDA-Public Use
  Company Number: US-PURDUE-USA-2010-0048296

PATIENT
  Sex: Female
  Weight: 77.098 kg

DRUGS (12)
  1. OXYCONTIN [Suspect]
     Indication: ARTHRITIS
  2. LISINOPRIL [Concomitant]
     Indication: CARDIAC FAILURE CONGESTIVE
     Dosage: UNK
  3. LORAZEPAM [Concomitant]
     Indication: ANXIETY
     Dosage: UNK
  4. OXYCODONE HCL [Suspect]
     Indication: NEUROPATHY PERIPHERAL
     Dosage: 40 MG, TID
     Dates: start: 20100901
  5. LASIX [Concomitant]
     Indication: CARDIAC FAILURE CONGESTIVE
     Dosage: 40 MG, Q6H
  6. OMEPRAZOLE [Concomitant]
     Indication: GASTROOESOPHAGEAL REFLUX DISEASE
     Dosage: UNK
  7. OXYCODONE HCL [Suspect]
     Indication: ARTHRITIS
  8. ASPIRIN [Concomitant]
     Indication: PRODUCT USED FOR UNKNOWN INDICATION
     Dosage: 81 MG, Q24H
  9. VICODIN [Concomitant]
     Indication: BREAKTHROUGH PAIN
     Dosage: UNK
  10. OXYCONTIN [Suspect]
     Indication: NEUROPATHY PERIPHERAL
     Dosage: 60 MG, TID
     Dates: start: 20100901
  11. NEURONTIN [Concomitant]
     Indication: NEUROPATHY PERIPHERAL
     Dosage: 200 MG, HS
  12. COREG [Concomitant]
     Indication: CARDIAC FAILURE CONGESTIVE
     Dosage: 12.5 MG, BID

REACTIONS (9)
  - ABDOMINAL DISCOMFORT [None]
  - THERAPEUTIC RESPONSE DELAYED [None]
  - CARDIAC FAILURE CONGESTIVE [None]
  - FLATULENCE [None]
  - CARDIOMYOPATHY [None]
  - INADEQUATE ANALGESIA [None]
  - HYPOAESTHESIA [None]
  - SOMNOLENCE [None]
  - NAUSEA [None]
